FAERS Safety Report 25257284 (Version 1)
Quarter: 2025Q2

REPORT INFORMATION
  Report Type: Spontaneous
  Country: GB (occurrence: GB)
  Receive Date: 20250430
  Receipt Date: 20250430
  Transmission Date: 20250716
  Serious: Yes (Other)
  Sender: pharmaAND
  Company Number: GB-Pharmaand-2025000438

PATIENT
  Sex: Female

DRUGS (1)
  1. RUBRACA [Suspect]
     Active Substance: RUCAPARIB CAMSYLATE
     Indication: Product used for unknown indication
     Route: 048
     Dates: start: 202103

REACTIONS (4)
  - Squamous cell carcinoma of skin [Unknown]
  - Hypertension [Unknown]
  - Blood bilirubin increased [Unknown]
  - Anaemia [Recovered/Resolved]

NARRATIVE: CASE EVENT DATE: 20210510
